FAERS Safety Report 7364857-7 (Version None)
Quarter: 2011Q1

REPORT INFORMATION
  Report Type: 
  Country: None (occurrence: None)
  Receive Date: 20110321
  Receipt Date: 20110222
  Transmission Date: 20110831
  Serious: No
  Sender: FDA-Public Use
  Company Number: US-B.I. PHARMACEUTICALS,INC./RIDGEFIELD-2011-BP-06521BP

PATIENT
  Sex: Male

DRUGS (11)
  1. PRADAXA [Suspect]
     Indication: HEART VALVE CALCIFICATION
     Dosage: 300 MG
     Route: 048
     Dates: start: 20110127, end: 20110216
  2. HYDROCHLOROTHIAZIDE [Concomitant]
     Indication: HYPERTENSION
  3. DILTIAZEM [Concomitant]
     Indication: HYPERTENSION
  4. LUMIGAN [Concomitant]
     Indication: GLAUCOMA
  5. CLONIDINE [Concomitant]
     Indication: HYPERTENSION
  6. JANUMET [Concomitant]
     Indication: DIABETES MELLITUS
  7. DORZOLAMIDE [Concomitant]
     Indication: GLAUCOMA
  8. VYTORIN [Concomitant]
     Indication: BLOOD CHOLESTEROL INCREASED
  9. GLIMEPIRIDE [Concomitant]
     Indication: DIABETES MELLITUS
  10. DEXTERA [Concomitant]
     Indication: HYPERTENSION
  11. BYSTOLIC [Concomitant]
     Indication: CARDIAC DISORDER

REACTIONS (2)
  - RECTAL HAEMORRHAGE [None]
  - GAIT DISTURBANCE [None]
